FAERS Safety Report 6810648-2 (Version None)
Quarter: 2010Q2

REPORT INFORMATION
  Report Type: 
  Country: None (occurrence: None)
  Receive Date: 20100629
  Receipt Date: 20100629
  Transmission Date: 20101027
  Serious: Yes (Other)
  Sender: FDA-Public Use
  Company Number: None

PATIENT
  Age: 39 Year
  Sex: Female
  Weight: 70 kg

DRUGS (18)
  1. LEVOFLOXACIN 750 / 150 ML DAILY IV SOLUTION [Suspect]
     Indication: PNEUMONIA
     Dosage: 750 MG DAILY IV
     Route: 042
     Dates: start: 20100614, end: 20100617
  2. PIPERACILLIN AND TAZOBACTAM [Concomitant]
  3. FUROSEMIDE [Concomitant]
  4. MORPHINE SULFATE [Concomitant]
  5. THIAMINE [Concomitant]
  6. LORAZEPAM [Concomitant]
  7. PANTOPRAZOLE [Concomitant]
  8. POTASSIUM CHLORIDE [Concomitant]
  9. PROMETHAZINE [Concomitant]
  10. VANCOMYCIN [Concomitant]
  11. MIRTAZAPINE [Concomitant]
  12. FOLIC ACID [Concomitant]
  13. OXYCODONE HCL [Concomitant]
  14. HYDROMORPHONE [Concomitant]
  15. MAGNESIUM SULFATE [Concomitant]
  16. MULTI-VITAMIN [Concomitant]
  17. DROPERIDOL [Concomitant]
  18. ALBUTEROL-IPATROPIUM [Concomitant]

REACTIONS (2)
  - CARDIAC DISORDER [None]
  - ELECTROCARDIOGRAM QT PROLONGED [None]
